FAERS Safety Report 18539582 (Version 2)
Quarter: 2021Q4

REPORT INFORMATION
  Report Type: Spontaneous
  Country: US (occurrence: US)
  Receive Date: 20201124
  Receipt Date: 20211123
  Transmission Date: 20220303
  Serious: Yes (Other)
  Sender: FDA-Public Use
  Company Number: US-ROCHE-2067192

PATIENT
  Sex: Female
  Weight: 61 kg

DRUGS (2)
  1. TARCEVA [Suspect]
     Active Substance: ERLOTINIB HYDROCHLORIDE
     Indication: Neuroendocrine carcinoma of the skin
     Route: 048
     Dates: start: 2006
  2. TARCEVA [Suspect]
     Active Substance: ERLOTINIB HYDROCHLORIDE
     Route: 048
     Dates: start: 2008

REACTIONS (10)
  - Staphylococcal infection [Unknown]
  - Drug eruption [Unknown]
  - Limb mass [Unknown]
  - Nasal disorder [Unknown]
  - Glossodynia [Unknown]
  - Taste disorder [Unknown]
  - Stomatitis [Unknown]
  - Diarrhoea [Unknown]
  - Intentional product use issue [Unknown]
  - Off label use [Unknown]
